FAERS Safety Report 18125790 (Version 1)
Quarter: 2020Q3

REPORT INFORMATION
  Report Type: Other
  Country: FR (occurrence: FR)
  Receive Date: 20200807
  Receipt Date: 20200807
  Transmission Date: 20201103
  Serious: Yes (Hospitalization)
  Sender: FDA-Public Use
  Company Number: FR-ALSI-202000284

PATIENT
  Age: 25 Year
  Sex: Male

DRUGS (1)
  1. NITROUS OXIDE. [Suspect]
     Active Substance: NITROUS OXIDE
     Indication: SUBSTANCE USE
     Route: 055

REACTIONS (5)
  - Myoclonus [Recovered/Resolved]
  - Substance abuse [Recovered/Resolved]
  - Muscle contractions involuntary [Recovered/Resolved]
  - Eye movement disorder [Recovered/Resolved]
  - Mydriasis [Recovered/Resolved]
